FAERS Safety Report 18835951 (Version 1)
Quarter: 2021Q1

REPORT INFORMATION
  Report Type: Spontaneous
  Country: US (occurrence: US)
  Receive Date: 20210203
  Receipt Date: 20210203
  Transmission Date: 20210419
  Serious: No
  Sender: FDA-Public Use
  Company Number: US-ALLERGAN-2007056US

PATIENT
  Age: 61 Year
  Sex: Female

DRUGS (3)
  1. BOTOX COSMETIC [Suspect]
     Active Substance: ONABOTULINUMTOXINA
     Indication: SKIN WRINKLING
     Dosage: UNK UNK, SINGLE
     Dates: start: 202001, end: 202001
  2. BOTOX COSMETIC [Suspect]
     Active Substance: ONABOTULINUMTOXINA
     Dosage: UNK
     Dates: start: 201912, end: 201912
  3. BOTOX COSMETIC [Suspect]
     Active Substance: ONABOTULINUMTOXINA
     Indication: SKIN WRINKLING
     Dosage: UNK
     Dates: start: 202001, end: 202001

REACTIONS (8)
  - Lip swelling [Recovered/Resolved]
  - Off label use [Unknown]
  - Facial paresis [Recovering/Resolving]
  - Injection site bruising [Recovered/Resolved]
  - Drug ineffective for unapproved indication [Unknown]
  - Pain in jaw [Recovered/Resolved]
  - Toothache [Recovered/Resolved]
  - Product administration error [Unknown]

NARRATIVE: CASE EVENT DATE: 201912
